FAERS Safety Report 4646065-3 (Version None)
Quarter: 2005Q2

REPORT INFORMATION
  Report Type: 
  Country: None (occurrence: None)
  Receive Date: 20050425
  Receipt Date: 20050411
  Transmission Date: 20051028
  Serious: Yes (Other)
  Sender: FDA-Public Use
  Company Number: 2004091518

PATIENT
  Age: 17 Year
  Sex: Female
  Weight: 54.4316 kg

DRUGS (4)
  1. DEPO-PROVERA [Suspect]
     Indication: CONTRACEPTION
     Dosage: SEE IMAGE
     Route: 030
     Dates: start: 20040628, end: 20040628
  2. DEPO-PROVERA [Suspect]
     Indication: CONTRACEPTION
     Dosage: SEE IMAGE
     Route: 030
     Dates: start: 20040923, end: 20040923
  3. DEPO-PROVERA [Suspect]
  4. ETHINYLESTRADIOL/NORELGESTROMIN (ETHINYLESTRADIOL, NORELGESTROMIN) [Concomitant]

REACTIONS (6)
  - DRUG EXPOSURE DURING PREGNANCY [None]
  - FOOD ALLERGY [None]
  - PITYRIASIS ALBA [None]
  - PRE-ECLAMPSIA [None]
  - UNINTENDED PREGNANCY [None]
  - WEIGHT INCREASED [None]
